FAERS Safety Report 25450602 (Version 1)
Quarter: 2025Q2

REPORT INFORMATION
  Report Type: Spontaneous
  Country: US (occurrence: None)
  Receive Date: 20250617
  Receipt Date: 20250617
  Transmission Date: 20250716
  Serious: Yes (Hospitalization)
  Sender: FDA-CTU
  Company Number: None

PATIENT
  Age: 16 Year
  Sex: Female

DRUGS (13)
  1. PULMOZYME [Suspect]
     Active Substance: DORNASE ALFA
     Indication: Cystic fibrosis
     Dosage: 2.5 MG BID RESPIRATORY (INHALATION)?
     Route: 055
  2. ZENPEP [Suspect]
     Active Substance: PANCRELIPASE AMYLASE\PANCRELIPASE LIPASE\PANCRELIPASE PROTEASE
     Indication: Cystic fibrosis
  3. LANTUS SOLOSTAR [Suspect]
     Active Substance: INSULIN GLARGINE
  4. INSULIN LISPRO [Suspect]
     Active Substance: INSULIN LISPRO
  5. MOXIFLOXACIN [Suspect]
     Active Substance: MOXIFLOXACIN
  6. ALYFTREK [Suspect]
     Active Substance: DEUTIVACAFTOR\TEZACAFTOR\VANZACAFTOR
  7. PREGABALIN [Suspect]
     Active Substance: PREGABALIN
  8. OMEPRAZOLE [Suspect]
     Active Substance: OMEPRAZOLE
  9. ACETYLCYSTEINE [Suspect]
     Active Substance: ACETYLCYSTEINE
  10. DULERA [Suspect]
     Active Substance: FORMOTEROL FUMARATE DIHYDRATE\MOMETASONE FUROATE
  11. VENTOLIN [Suspect]
     Active Substance: ALBUTEROL SULFATE
  12. ALBUTEROL [Suspect]
     Active Substance: ALBUTEROL
  13. VITAMINS\ZINC [Suspect]
     Active Substance: VITAMINS\ZINC

REACTIONS (1)
  - Hospitalisation [None]

NARRATIVE: CASE EVENT DATE: 20250617
